FAERS Safety Report 4604817-X (Version None)
Quarter: 2005Q2

REPORT INFORMATION
  Report Type: 
  Country: None (occurrence: None)
  Receive Date: 20050224
  Receipt Date: 20040526
  Transmission Date: 20051028
  Serious: No
  Sender: FDA-Public Use
  Company Number: 04P-163-0262057-00

PATIENT
  Age: 3 Year
  Sex: Female
  Weight: 15 kg

DRUGS (1)
  1. MIVACRON [Suspect]
     Indication: NEUROMUSCULAR BLOCKADE
     Dosage: 0.2 MG/KG, ONCE, INTRAVENOUS
     Route: 042
     Dates: start: 20040501, end: 20040501

REACTIONS (2)
  - ANAESTHETIC COMPLICATION NEUROLOGICAL [None]
  - NEUROMUSCULAR BLOCK PROLONGED [None]
